FAERS Safety Report 5838063-9 (Version None)
Quarter: 2008Q3

REPORT INFORMATION
  Report Type: 
  Country: None (occurrence: None)
  Receive Date: 20080808
  Receipt Date: 20080613
  Transmission Date: 20090109
  Serious: No
  Sender: FDA-Public Use
  Company Number: A0725863A

PATIENT
  Age: 28 Year
  Sex: Female

DRUGS (4)
  1. PAXIL [Suspect]
     Indication: DRUG USE FOR UNKNOWN INDICATION
     Dosage: 10MG UNKNOWN
     Route: 048
  2. PRILOSEC [Concomitant]
     Route: 048
  3. CLARITIN-D [Concomitant]
     Route: 048
  4. REGLAN [Concomitant]
     Route: 048

REACTIONS (1)
  - DISTURBANCE IN SEXUAL AROUSAL [None]
